FAERS Safety Report 12887221 (Version 1)
Quarter: 2016Q4

REPORT INFORMATION
  Report Type: Spontaneous
  Country: US (occurrence: US)
  Receive Date: 20161026
  Receipt Date: 20161026
  Transmission Date: 20170207
  Serious: Yes (Other)
  Sender: FDA-Public Use
  Company Number: US-ABBVIE-16P-163-1744420-00

PATIENT
  Age: 34 Year
  Sex: Female

DRUGS (1)
  1. LUPRON DEPOT [Suspect]
     Active Substance: LEUPROLIDE ACETATE
     Indication: ENDOMETRIOSIS
     Route: 050

REACTIONS (9)
  - Endometriosis [Unknown]
  - Fatigue [Unknown]
  - Pain [Unknown]
  - Adverse drug reaction [Unknown]
  - Myalgia [Unknown]
  - Confusional state [Unknown]
  - General physical health deterioration [Unknown]
  - Arthralgia [Unknown]
  - Somnolence [Unknown]
